FAERS Safety Report 9448859 (Version 3)
Quarter: 2013Q4

REPORT INFORMATION
  Report Type: Spontaneous
  Country: NL (occurrence: NL)
  Receive Date: 20130808
  Receipt Date: 20131007
  Transmission Date: 20140711
  Serious: Yes (Hospitalization)
  Sender: FDA-Public Use
  Company Number: NL-JNJFOC-20130801402

PATIENT
  Age: 41 Year
  Sex: Male

DRUGS (15)
  1. REMICADE [Suspect]
     Indication: PSORIASIS
     Route: 042
     Dates: start: 20130215
  2. REMICADE [Suspect]
     Indication: PSORIASIS
     Route: 042
     Dates: start: 20130802
  3. REMICADE [Suspect]
     Indication: PSORIASIS
     Route: 042
     Dates: start: 20130927
  4. ATORVASTATIN [Concomitant]
     Route: 065
     Dates: start: 201307
  5. VIT D [Concomitant]
     Dosage: 800IE
     Route: 065
     Dates: start: 201307
  6. ENALAPRIL [Concomitant]
     Route: 065
     Dates: start: 201307
  7. PIZOTIFEN MALEATE [Concomitant]
     Indication: MIGRAINE
     Route: 065
  8. PIZOTIFEN MALEATE [Concomitant]
     Indication: MIGRAINE
     Dosage: 1,5MG 1 DD 1 AND 1 DD 2
     Route: 065
  9. METOPROLOL SUCCINATE [Concomitant]
     Indication: MIGRAINE
     Dosage: 1 DD 1
     Route: 065
  10. METFORMIN [Concomitant]
     Dosage: 2 DD 1
     Route: 065
  11. CITALOPRAM [Concomitant]
     Route: 065
  12. VENTOLIN [Concomitant]
     Route: 065
  13. FOSTER [Concomitant]
     Route: 065
  14. SIMVASTATIN [Concomitant]
     Indication: HYPERCHOLESTEROLAEMIA
     Route: 065
  15. TAVEGIL [Concomitant]
     Indication: PREMEDICATION
     Route: 065

REACTIONS (7)
  - Hyperhidrosis [Recovered/Resolved]
  - Blood pressure increased [Recovered/Resolved]
  - Chest pain [Recovered/Resolved]
  - Painful respiration [Recovered/Resolved]
  - Chest discomfort [Recovered/Resolved]
  - Infusion related reaction [Recovered/Resolved]
  - Hypotension [Recovered/Resolved]
